FAERS Safety Report 8708424 (Version 2)
Quarter: 2012Q4

REPORT INFORMATION
  Report Type: 
  Country: JP (occurrence: JP)
  Receive Date: 20120806
  Receipt Date: 20121107
  Transmission Date: 20130627
  Serious: Yes (Hospitalization, Other)
  Sender: FDA-Public Use
  Company Number: JP-PFIZER INC-2012184855

PATIENT
  Age: 37 Year
  Sex: Female

DRUGS (6)
  1. PREMARIN [Suspect]
     Indication: DYSMENORRHOEA
     Dosage: 0.625 mg, 2x/day
     Route: 048
     Dates: start: 2006, end: 20071231
  2. PROVERA [Suspect]
     Indication: DYSMENORRHOEA
     Dosage: 2.5 mg, 2x/day
     Route: 048
     Dates: end: 20071231
  3. MESTRANOL\NORETHINDRONE [Suspect]
     Indication: DYSMENORRHOEA
     Dosage: 1 DF, 1x/day
     Route: 048
     Dates: end: 20071231
  4. METOLATE [Concomitant]
     Indication: RHEUMATOID ARTHRITIS
     Dosage: 2 mg, 2mg/2xday (wednesday), 2mg/1xday (thursday)
     Route: 048
  5. SELBEX [Concomitant]
     Indication: GASTRITIS
     Dosage: 50 mg, 3x/day
     Route: 048
  6. INTEBAN [Concomitant]
     Indication: RHEUMATOID ARTHRITIS
     Dosage: 25 mg, 3x/day
     Route: 048

REACTIONS (1)
  - Cerebral infarction [Recovered/Resolved with Sequelae]
